FAERS Safety Report 4916548-7 (Version None)
Quarter: 2006Q1

REPORT INFORMATION
  Report Type: 
  Country: None (occurrence: None)
  Receive Date: 20060216
  Receipt Date: 20060216
  Transmission Date: 20060701
  Serious: Yes (Hospitalization)
  Sender: FDA-Public Use
  Company Number: None

PATIENT
  Age: 81 Year
  Sex: Female

DRUGS (17)
  1. ALTACE [Suspect]
     Indication: CORONARY ARTERY DISEASE
     Dosage: 10 MG DAILY
  2. SPIRONOLACTONE [Suspect]
     Indication: BLOOD PRESSURE
     Dosage: 25 MG DAILY
  3. SPIRONOLACTONE [Suspect]
     Indication: CARDIAC FAILURE CONGESTIVE
     Dosage: 25 MG DAILY
  4. COZAAR [Suspect]
     Dosage: 100 MG DAILY
  5. VITAMIN E [Concomitant]
  6. VITAMIN B COMPLEX CAP [Concomitant]
  7. PLAVIX [Concomitant]
  8. PROTONIX [Concomitant]
  9. DETRAL [Concomitant]
  10. VIOXX [Concomitant]
  11. LIPITOR [Concomitant]
  12. BUMEX [Concomitant]
  13. SYNTHROID [Concomitant]
  14. ACTOS [Concomitant]
  15. SULAR [Concomitant]
  16. ATENOLOL [Concomitant]
  17. PAXIL [Concomitant]

REACTIONS (1)
  - HYPERKALAEMIA [None]
